FAERS Safety Report 11636996 (Version 2)
Quarter: 2015Q4

REPORT INFORMATION
  Report Type: Spontaneous
  Country: CA (occurrence: CA)
  Receive Date: 20151016
  Receipt Date: 20151118
  Transmission Date: 20160304
  Serious: Yes (Other)
  Sender: FDA-Public Use
  Company Number: CA-JNJFOC-20151005109

PATIENT
  Sex: Female

DRUGS (2)
  1. INSULIN [Concomitant]
     Active Substance: INSULIN NOS
     Dosage: 36 UNITS AT NIGHT
     Route: 065
  2. INVOKANA [Suspect]
     Active Substance: CANAGLIFLOZIN
     Indication: TYPE 2 DIABETES MELLITUS
     Route: 065
     Dates: start: 20151001

REACTIONS (19)
  - Blood glucose decreased [Unknown]
  - Hypoaesthesia oral [Unknown]
  - Headache [Unknown]
  - Neck pain [Unknown]
  - Chest pain [Unknown]
  - Weight decreased [Unknown]
  - Dizziness [Unknown]
  - Arrhythmia [Unknown]
  - Musculoskeletal pain [Unknown]
  - Abdominal pain [Unknown]
  - Pollakiuria [Unknown]
  - Thirst [Unknown]
  - Postmenopausal haemorrhage [Unknown]
  - Angina pectoris [Unknown]
  - Vision blurred [Unknown]
  - Alopecia [Unknown]
  - Back pain [Unknown]
  - Nausea [Unknown]
  - Dehydration [Unknown]
